FAERS Safety Report 21959514 (Version 2)
Quarter: 2023Q1

REPORT INFORMATION
  Report Type: Spontaneous
  Country: IT (occurrence: IT)
  Receive Date: 20230206
  Receipt Date: 20230322
  Transmission Date: 20230418
  Serious: Yes (Other)
  Sender: FDA-Public Use
  Company Number: IT-BRUNO-20220518

PATIENT
  Age: 30 Year
  Sex: Male

DRUGS (1)
  1. METFORMIN [Suspect]
     Active Substance: METFORMIN HYDROCHLORIDE
     Indication: Type 2 diabetes mellitus
     Dosage: UNK
     Route: 065

REACTIONS (3)
  - Type 2 diabetes mellitus [Recovering/Resolving]
  - Diabetic metabolic decompensation [Recovered/Resolved]
  - Condition aggravated [Recovering/Resolving]
